FAERS Safety Report 8549081 (Version 4)
Quarter: 2013Q3

REPORT INFORMATION
  Report Type: Spontaneous
  Country: CA (occurrence: CA)
  Receive Date: 20120507
  Receipt Date: 20130712
  Transmission Date: 20140515
  Serious: Yes (Hospitalization, Other)
  Sender: FDA-Public Use
  Company Number: CA-JNJFOC-20120502008

PATIENT
  Age: 41 Year
  Sex: Male
  Weight: 71.8 kg

DRUGS (5)
  1. REMICADE [Suspect]
     Indication: ANKYLOSING SPONDYLITIS
     Dosage: 25TH INFUSION
     Route: 042
     Dates: start: 20120515
  2. REMICADE [Suspect]
     Indication: ANKYLOSING SPONDYLITIS
     Dosage: 24TH INFUSION
     Route: 042
     Dates: start: 20120306
  3. REMICADE [Suspect]
     Indication: ANKYLOSING SPONDYLITIS
     Route: 042
     Dates: start: 20081030
  4. INDOCID [Concomitant]
     Route: 065
  5. FLOMAX [Concomitant]
     Route: 065

REACTIONS (2)
  - Nephrolithiasis [Recovered/Resolved]
  - Herpes zoster [Recovered/Resolved]
